FAERS Safety Report 7121836-2 (Version None)
Quarter: 2010Q4

REPORT INFORMATION
  Report Type: 
  Country: None (occurrence: None)
  Receive Date: 20101124
  Receipt Date: 20101124
  Transmission Date: 20110411
  Serious: Yes (Other)
  Sender: FDA-Public Use
  Company Number: NZ-ROCHE-737514

PATIENT
  Sex: Female
  Weight: 94 kg

DRUGS (2)
  1. HERCEPTIN [Suspect]
     Dosage: 9 HERCEPTIN ADMINISTRATIONS.  ADJUVANT TRASTUZUMAB
     Route: 042
     Dates: start: 20100303
  2. HERCEPTIN [Suspect]
     Dosage: BATCH NUMBER : NUMEROUS
     Route: 042
     Dates: start: 20100324, end: 20101019

REACTIONS (1)
  - ACUTE MYOCARDIAL INFARCTION [None]
